FAERS Safety Report 7022114-2 (Version None)
Quarter: 2010Q3

REPORT INFORMATION
  Report Type: 
  Country: None (occurrence: None)
  Receive Date: 20100930
  Receipt Date: 20100920
  Transmission Date: 20110219
  Serious: No
  Sender: FDA-Public Use
  Company Number: US-ROXANE LABORATORIES, INC.-2010-RO-01280RO

PATIENT
  Age: 74 Year
  Sex: Female

DRUGS (1)
  1. ANASTROZOLE [Suspect]
     Indication: BREAST LUMP REMOVAL
     Dosage: 1 MG
     Route: 048
     Dates: start: 20100901

REACTIONS (1)
  - SKIN DISCOLOURATION [None]
